FAERS Safety Report 8456686-8 (Version None)
Quarter: 2012Q2

REPORT INFORMATION
  Report Type: 
  Country: None (occurrence: None)
  Receive Date: 20120323
  Receipt Date: 20111020
  Transmission Date: 20120825
  Serious: Yes (Hospitalization)
  Sender: FDA-Public Use
  Company Number: 163-21880-11090357

PATIENT
  Age: 63 Year
  Sex: Female

DRUGS (3)
  1. REVLIMID [Suspect]
     Indication: MULTIPLE MYELOMA
     Dosage: 25 MG, PO, 10 MG, PO, 25 MG, DAILY X 21 DAYS, PO
     Route: 048
     Dates: start: 20100901
  2. REVLIMID [Suspect]
     Indication: MULTIPLE MYELOMA
     Dosage: 25 MG, PO, 10 MG, PO, 25 MG, DAILY X 21 DAYS, PO
     Route: 048
     Dates: start: 20090801
  3. REVLIMID [Suspect]
     Indication: MULTIPLE MYELOMA
     Dosage: 25 MG, PO, 10 MG, PO, 25 MG, DAILY X 21 DAYS, PO
     Route: 048
     Dates: start: 20110401

REACTIONS (1)
  - ATRIAL FIBRILLATION [None]
